FAERS Safety Report 9858242 (Version 2)
Quarter: 2014Q1

REPORT INFORMATION
  Report Type: Spontaneous
  Country: FR (occurrence: FR)
  Receive Date: 20140131
  Receipt Date: 20140225
  Transmission Date: 20141002
  Serious: Yes (Hospitalization)
  Sender: FDA-Public Use
  Company Number: FR-MERCK-1401FRA009344

PATIENT
  Age: 59 Year
  Sex: Male

DRUGS (4)
  1. CANCIDAS [Suspect]
     Indication: RESPIRATORY MONILIASIS
     Dosage: 70 MG, ONCE
     Route: 042
     Dates: start: 20130801, end: 20130801
  2. CANCIDAS [Suspect]
     Dosage: UNK
     Route: 040
     Dates: start: 20130819, end: 20130822
  3. BRISTOPEN [Suspect]
     Dosage: 1 G, Q2H
     Route: 042
     Dates: start: 20130730, end: 20130804
  4. TRIFLUCAN [Suspect]
     Indication: RESPIRATORY MONILIASIS
     Dosage: 400 MG, QD
     Route: 042
     Dates: start: 20130802, end: 20130818

REACTIONS (3)
  - Cholestasis [Recovering/Resolving]
  - Gamma-glutamyltransferase increased [Recovering/Resolving]
  - Transaminases increased [Recovering/Resolving]
